FAERS Safety Report 24391157 (Version 1)
Quarter: 2024Q4

REPORT INFORMATION
  Report Type: Spontaneous
  Country: US (occurrence: None)
  Receive Date: 20241002
  Receipt Date: 20241002
  Transmission Date: 20250114
  Serious: Yes (Death)
  Sender: Public
  Company Number: None

PATIENT
  Age: 64 Year
  Sex: Female
  Weight: 58.6 kg

DRUGS (1)
  1. ENTECAVIR [Suspect]
     Active Substance: ENTECAVIR
     Indication: Hepatitis B
     Dates: start: 20221007, end: 20240710

REACTIONS (2)
  - Plasma cell myeloma [None]
  - Disease progression [None]

NARRATIVE: CASE EVENT DATE: 20240915
